FAERS Safety Report 10510298 (Version 1)
Quarter: 2014Q4

REPORT INFORMATION
  Report Type: Spontaneous
  Country: US (occurrence: US)
  Receive Date: 20141010
  Receipt Date: 20141010
  Transmission Date: 20150528
  Serious: Yes (Other)
  Sender: FDA-Public Use
  Company Number: US-BAYER-2014-149451

PATIENT
  Sex: Female

DRUGS (8)
  1. PAXIL [Concomitant]
     Active Substance: PAROXETINE HYDROCHLORIDE
     Dosage: 10 MG, UNK
  2. VITAMIN D [COLECALCIFEROL] [Concomitant]
     Route: 048
  3. LIORESAL [Concomitant]
     Active Substance: BACLOFEN
     Dosage: 10 MG, UNK
  4. PRINCIPEN [Concomitant]
     Active Substance: AMPICILLIN\AMPICILLIN TRIHYDRATE
     Dosage: 500 MG, UNK
  5. DITROPAN [Concomitant]
     Active Substance: OXYBUTYNIN CHLORIDE
     Dosage: 5 MG, UNK
  6. BETASERON [Suspect]
     Active Substance: INTERFERON BETA-1B
     Indication: MULTIPLE SCLEROSIS
     Dosage: 0.3 MG, UNK
     Dates: start: 1990
  7. TOPROL XL [Concomitant]
     Active Substance: METOPROLOL SUCCINATE
     Dosage: 50 MG, UNK
  8. DIFLUCAN [Concomitant]
     Active Substance: FLUCONAZOLE
     Dosage: 200 MG, UNK

REACTIONS (2)
  - Complex partial seizures [None]
  - Dyskinesia [None]
